FAERS Safety Report 26082237 (Version 1)
Quarter: 2025Q4

REPORT INFORMATION
  Report Type: Spontaneous
  Country: EU (occurrence: EU)
  Receive Date: 20251124
  Receipt Date: 20251124
  Transmission Date: 20260117
  Serious: Yes (Other)
  Sender: ROCHE
  Company Number: None

PATIENT
  Age: 62 Year
  Sex: Female

DRUGS (4)
  1. VEMURAFENIB [Suspect]
     Active Substance: VEMURAFENIB
     Indication: Product used for unknown indication
     Route: 050
  2. COBIMETINIB [Suspect]
     Active Substance: COBIMETINIB
     Indication: Product used for unknown indication
     Route: 050
  3. NIVOLUMAB [Suspect]
     Active Substance: NIVOLUMAB
     Indication: Malignant melanoma
     Route: 050
     Dates: start: 202111, end: 202306
  4. NIVOLUMAB [Suspect]
     Active Substance: NIVOLUMAB
     Route: 050
     Dates: start: 202004, end: 202109

REACTIONS (7)
  - Polyarthritis [Unknown]
  - Rheumatoid arthritis [Unknown]
  - Autoimmune colitis [Unknown]
  - Arthralgia [Unknown]
  - Bone pain [Unknown]
  - Tendon pain [Unknown]
  - Metastases to lymph nodes [Unknown]

NARRATIVE: CASE EVENT DATE: 20200501
